FAERS Safety Report 13736950 (Version 1)
Quarter: 2017Q3

REPORT INFORMATION
  Report Type: Report from Study
  Country: IT (occurrence: IT)
  Receive Date: 20170710
  Receipt Date: 20170710
  Transmission Date: 20171127
  Serious: Yes (Hospitalization)
  Sender: FDA-Public Use
  Company Number: IT-TEVA-783625ROM

PATIENT
  Age: 53 Year
  Sex: Male

DRUGS (4)
  1. PREDNISONE. [Suspect]
     Active Substance: PREDNISONE
     Route: 065
  2. NIMESULIDE [Interacting]
     Active Substance: NIMESULIDE
     Route: 065
  3. NAPROXEN. [Interacting]
     Active Substance: NAPROXEN
     Route: 065
  4. ACETYLSALICYLIC ACID [Interacting]
     Active Substance: ASPIRIN
     Route: 065

REACTIONS (5)
  - Erosive duodenitis [Recovering/Resolving]
  - Drug interaction [Recovering/Resolving]
  - Gastritis [Recovering/Resolving]
  - Gastrointestinal mucosa hyperaemia [Recovering/Resolving]
  - Gastric ulcer haemorrhage [Recovering/Resolving]
